FAERS Safety Report 10794913 (Version 1)
Quarter: 2015Q1

REPORT INFORMATION
  Report Type: Spontaneous
  Country: US (occurrence: US)
  Receive Date: 20150214
  Receipt Date: 20150214
  Transmission Date: 20150721
  Serious: No
  Sender: FDA-Public Use
  Company Number: US-GLAXOSMITHKLINE-A1067387A

PATIENT

DRUGS (1)
  1. ALLI [Suspect]
     Active Substance: ORLISTAT
     Indication: WEIGHT DECREASED
     Dates: start: 201402, end: 201403

REACTIONS (16)
  - Malaise [Not Recovered/Not Resolved]
  - Vomiting [Recovered/Resolved]
  - Musculoskeletal disorder [Unknown]
  - Hypoaesthesia [Unknown]
  - Abdominal pain upper [Unknown]
  - Vision blurred [Unknown]
  - Insomnia [Unknown]
  - Dizziness [Unknown]
  - Dyspnoea [Unknown]
  - Cardiac disorder [Unknown]
  - Discomfort [Unknown]
  - Gait disturbance [Unknown]
  - Eating disorder [Recovered/Resolved]
  - Headache [Unknown]
  - Constipation [Recovered/Resolved]
  - Sleep disorder [Unknown]
